FAERS Safety Report 11918469 (Version 1)
Quarter: 2016Q1

REPORT INFORMATION
  Report Type: Spontaneous
  Country: US (occurrence: US)
  Receive Date: 20160115
  Receipt Date: 20160115
  Transmission Date: 20160526
  Serious: No
  Sender: FDA-Public Use
  Company Number: US-009507513-1601USA003559

PATIENT
  Sex: Female

DRUGS (1)
  1. NEXPLANON [Suspect]
     Active Substance: ETONOGESTREL
     Dosage: A ROD, 68 MG/3 YEARS
     Route: 059
     Dates: start: 20130107

REACTIONS (4)
  - Incorrect drug administration duration [Unknown]
  - Device breakage [Unknown]
  - Device difficult to use [Unknown]
  - No adverse event [Unknown]

NARRATIVE: CASE EVENT DATE: 20160108
